FAERS Safety Report 25462432 (Version 1)
Quarter: 2025Q2

REPORT INFORMATION
  Report Type: Spontaneous
  Country: US (occurrence: None)
  Receive Date: 20250619
  Receipt Date: 20250619
  Transmission Date: 20250717
  Serious: Yes (unspecified)
  Sender: FDA-CTU
  Company Number: None

PATIENT
  Age: 52 Year
  Sex: Female
  Weight: 117 kg

DRUGS (1)
  1. SORAFENIB [Suspect]
     Active Substance: SORAFENIB
     Indication: Thyroid cancer
     Dosage: 400 MG TWICE A DAY ORAL
     Route: 048
     Dates: start: 20240403

REACTIONS (2)
  - Nodule [None]
  - Pain [None]

NARRATIVE: CASE EVENT DATE: 20250616
